FAERS Safety Report 10063234 (Version 5)
Quarter: 2014Q3

REPORT INFORMATION
  Report Type: Report from Study
  Country: GB (occurrence: GB)
  Receive Date: 20140407
  Receipt Date: 20140721
  Transmission Date: 20150326
  Serious: Yes (Other)
  Sender: FDA-Public Use
  Company Number: GB-VERTEX PHARMACEUTICALS INC-2014-001249

PATIENT
  Age: 66 Year
  Sex: Female

DRUGS (4)
  1. PEGYLATED INTERFERON ALPHA NOS [Suspect]
     Active Substance: PEGINTERFERON ALFA-2A OR PEGINTERFERON ALFA-2B
     Indication: HEPATITIS C
     Dosage: UNK, QW
     Route: 058
     Dates: start: 20140221
  2. RIBAVIRIN. [Suspect]
     Active Substance: RIBAVIRIN
     Indication: HEPATITIS C
     Dosage: UNK, BID
     Route: 048
     Dates: start: 20140221
  3. TELAPREVIR [Suspect]
     Active Substance: TELAPREVIR
     Dosage: 1125 MG, BID
     Route: 048
  4. TELAPREVIR [Suspect]
     Active Substance: TELAPREVIR
     Indication: HEPATITIS C
     Dosage: 750 MG, TID
     Route: 048
     Dates: start: 20140221

REACTIONS (17)
  - Decreased appetite [Not Recovered/Not Resolved]
  - Dehydration [Recovering/Resolving]
  - Decreased appetite [Unknown]
  - Diabetes mellitus [Not Recovered/Not Resolved]
  - Glucose urine present [Unknown]
  - Pruritus [Not Recovered/Not Resolved]
  - Renal disorder [Unknown]
  - Influenza like illness [Recovered/Resolved]
  - Muscle spasms [Not Recovered/Not Resolved]
  - Syncope [Unknown]
  - Rash [Not Recovered/Not Resolved]
  - Nausea [Not Recovered/Not Resolved]
  - Anaemia [Not Recovered/Not Resolved]
  - Cough [Recovering/Resolving]
  - Asthenia [Not Recovered/Not Resolved]
  - Joint swelling [Unknown]
  - Fatigue [Not Recovered/Not Resolved]

NARRATIVE: CASE EVENT DATE: 201402
